FAERS Safety Report 6512372-2 (Version None)
Quarter: 2009Q4

REPORT INFORMATION
  Report Type: 
  Country: None (occurrence: None)
  Receive Date: 20091222
  Receipt Date: 20091214
  Transmission Date: 20100525
  Serious: Yes (Other)
  Sender: FDA-Public Use
  Company Number: FR-PFIZER INC-2009309619

PATIENT
  Age: 27 Year

DRUGS (1)
  1. METRONIDAZOLE BENZOATE AND METRONIDAZOLE AND METRONIDAZOLE HYDROCHLORI [Suspect]
     Indication: BRAIN ABSCESS

REACTIONS (2)
  - CEREBELLAR SYNDROME [None]
  - NEUROPATHY PERIPHERAL [None]
